FAERS Safety Report 21531907 (Version 1)
Quarter: 2022Q4

REPORT INFORMATION
  Report Type: Spontaneous
  Country: CA (occurrence: CA)
  Receive Date: 20221101
  Receipt Date: 20221101
  Transmission Date: 20230113
  Serious: Yes (Hospitalization, Other)
  Sender: FDA-Public Use
  Company Number: CA-BAXTER-2022BAX022966

PATIENT
  Age: 85 Year
  Sex: Female
  Weight: 49 kg

DRUGS (18)
  1. CEFTRIAXONE [Suspect]
     Active Substance: CEFTRIAXONE
     Dosage: (DOSAGE FORM: POWDER FOR SOLUTION INTRAMUSCULAR)
     Route: 065
  2. INVANZ [Suspect]
     Active Substance: ERTAPENEM SODIUM
     Dosage: 1000 MG, 1 EVERY 24 HOURS (DOSAGE FORM: POWDER FOR SOLUTION INTRAMUSCULAR)
     Route: 042
  3. MEROPENEM [Suspect]
     Active Substance: MEROPENEM
     Dosage: (DOSAGE FORM: POWDER FOR SOLUTION INTRAVENOUS)
     Route: 065
  4. ACETAMINOPHEN [Concomitant]
     Active Substance: ACETAMINOPHEN
     Dosage: (DOSAGE FORM: NOT SPECIFIED)
     Route: 065
  5. CALCIUM CARBONATE [Concomitant]
     Active Substance: CALCIUM CARBONATE
     Dosage: (DOSAGE FORM: NOT SPECIFIED)
     Route: 065
  6. CHOLECALCIFEROL [Concomitant]
     Active Substance: CHOLECALCIFEROL
     Dosage: (DOSAGE FORM: NOT SPECIFIED)
     Route: 065
  7. CYANOCOBALAMIN [Concomitant]
     Active Substance: CYANOCOBALAMIN
     Dosage: (DOSAGE FORM: NOT SPECIFIED)
     Route: 065
  8. DICLOFENAC [Concomitant]
     Active Substance: DICLOFENAC
     Route: 065
  9. DILTIAZEM [Concomitant]
     Active Substance: DILTIAZEM
     Route: 065
  10. HEPARIN SODIUM [Concomitant]
     Active Substance: HEPARIN SODIUM
     Dosage: (DOSAGE FORM: SOLUTION INTRAVENOUS)
     Route: 065
  11. HYDROMORPHONE [Concomitant]
     Active Substance: HYDROMORPHONE
     Route: 065
  12. FERROUS SULFATE ANHYDROUS [Concomitant]
     Active Substance: FERROUS SULFATE ANHYDROUS
     Dosage: (DOSAGE FORM: NOT SPECIFIED)
     Route: 065
  13. LORAZEPAM [Concomitant]
     Active Substance: LORAZEPAM
     Route: 065
  14. PANTOPRAZOLE [Concomitant]
     Active Substance: PANTOPRAZOLE
     Dosage: (DOSAGE FORM: POWDER FOR SOLUTION INTRAVENOUS)
     Route: 065
  15. PREDNISONE [Concomitant]
     Active Substance: PREDNISONE
     Dosage: (DOSAGE FORM: NOT SPECIFIED)
     Route: 065
  16. ROSUVASTATIN [Concomitant]
     Active Substance: ROSUVASTATIN
     Route: 065
  17. ALBUTEROL [Concomitant]
     Active Substance: ALBUTEROL
     Dosage: (DOSAGE FORM: LIQUID INTRAVENOUS)
     Route: 065
  18. SYMBICORT [Concomitant]
     Active Substance: BUDESONIDE\FORMOTEROL FUMARATE DIHYDRATE
     Dosage: (DOSAGE FORM: NOT SPECIFIED)
     Route: 065

REACTIONS (2)
  - Disease recurrence [Recovered/Resolved]
  - Clostridium difficile colitis [Recovered/Resolved]
